FAERS Safety Report 6222836-7 (Version None)
Quarter: 2009Q2

REPORT INFORMATION
  Report Type: 
  Country: None (occurrence: None)
  Receive Date: 20090611
  Receipt Date: 20090604
  Transmission Date: 20091009
  Serious: Yes (Hospitalization)
  Sender: FDA-Public Use
  Company Number: B0565862A

PATIENT
  Sex: Male

DRUGS (14)
  1. PAXIL [Suspect]
     Indication: OBSESSIVE THOUGHTS
     Dosage: 10MG PER DAY
     Route: 048
     Dates: start: 20061002, end: 20061010
  2. UNKNOWN DRUG [Suspect]
     Indication: DRUG USE FOR UNKNOWN INDICATION
     Route: 065
  3. RISPERDAL [Concomitant]
     Indication: PERSECUTORY DELUSION
     Dosage: 4MG PER DAY
     Route: 048
     Dates: start: 20060330, end: 20060517
  4. RISPERDAL [Concomitant]
     Dosage: 10MG PER DAY
     Route: 048
     Dates: start: 20060518, end: 20060521
  5. RISPERDAL [Concomitant]
     Dosage: 6MG PER DAY
     Route: 048
     Dates: start: 20060522, end: 20061010
  6. LEMONAMIN [Concomitant]
     Indication: PERSECUTORY DELUSION
     Dosage: 4.5MG PER DAY
     Route: 048
     Dates: start: 20060518, end: 20061010
  7. CONTOMIN [Concomitant]
     Indication: PERSECUTORY DELUSION
     Dosage: 337.5MG PER DAY
     Route: 048
     Dates: start: 20060518, end: 20061010
  8. NORMALIN [Concomitant]
     Dosage: 90MG PER DAY
     Route: 048
     Dates: start: 20060518, end: 20060607
  9. BIPERIDEN HYDROCHLORIDE TAB [Concomitant]
     Indication: PARKINSON'S DISEASE
     Dosage: 9MG PER DAY
     Route: 048
     Dates: start: 20060518, end: 20061010
  10. PROMETHAZINE HCL [Concomitant]
     Indication: ANXIETY
     Dosage: 225MG PER DAY
     Route: 048
     Dates: start: 20060518, end: 20061010
  11. LEVOTOMIN [Concomitant]
     Indication: ANXIETY
     Dosage: 27MG PER DAY
     Route: 048
     Dates: start: 20060522, end: 20060607
  12. UNKNOWN DRUG [Concomitant]
     Indication: PERSECUTORY DELUSION
     Route: 048
  13. ETISEDAN [Concomitant]
     Indication: ANXIETY
     Dosage: 9MG PER DAY
     Route: 048
     Dates: start: 20060522, end: 20061010
  14. RISPERDAL [Concomitant]
     Route: 048
     Dates: start: 20060608, end: 20061010

REACTIONS (6)
  - EATING DISORDER [None]
  - INSOMNIA [None]
  - MUSCLE RIGIDITY [None]
  - NEUROLEPTIC MALIGNANT SYNDROME [None]
  - PYREXIA [None]
  - TREMOR [None]
